FAERS Safety Report 9884334 (Version 2)
Quarter: 2014Q1

REPORT INFORMATION
  Report Type: Spontaneous
  Country: US (occurrence: US)
  Receive Date: 20140210
  Receipt Date: 20140210
  Transmission Date: 20141002
  Serious: No
  Sender: FDA-Public Use
  Company Number: US-ALLERGAN-1315807US

PATIENT
  Age: 6 Decade
  Sex: Male

DRUGS (5)
  1. BOTOX [Suspect]
     Indication: TENSION HEADACHE
     Dosage: 40 UNITS, SINGLE
     Route: 030
     Dates: start: 20131004, end: 20131004
  2. BOTOX [Suspect]
     Dosage: UNK
  3. LIPITOR [Concomitant]
     Indication: PRODUCT USED FOR UNKNOWN INDICATION
     Dosage: UNK
  4. FISH OIL [Concomitant]
     Indication: PRODUCT USED FOR UNKNOWN INDICATION
     Dosage: UNK
  5. MVI [Concomitant]
     Indication: PRODUCT USED FOR UNKNOWN INDICATION
     Dosage: UNK

REACTIONS (3)
  - Product container issue [Unknown]
  - Off label use [Unknown]
  - Drug ineffective [Unknown]
